FAERS Safety Report 15646314 (Version 2)
Quarter: 2018Q4

REPORT INFORMATION
  Report Type: Report from Study
  Country: None (occurrence: IT)
  Receive Date: 20181122
  Receipt Date: 20181211
  Transmission Date: 20190205
  Serious: Yes (Other)
  Sender: FDA-Public Use
  Company Number: IT-ABBVIE-18S-083-2560167-00

PATIENT
  Age: 72 Year
  Sex: Male

DRUGS (1)
  1. DUODOPA [Suspect]
     Active Substance: CARBIDOPA\LEVODOPA
     Indication: PARKINSON^S DISEASE
     Dosage: MD: 5+3, CR: 3,3, ED: 2
     Route: 050
     Dates: start: 20170606, end: 20181207

REACTIONS (5)
  - Pneumonia [Unknown]
  - Feeding disorder [Unknown]
  - Bursitis [Unknown]
  - Skin lesion [Unknown]
  - Back pain [Unknown]

NARRATIVE: CASE EVENT DATE: 201811
